FAERS Safety Report 23205896 (Version 2)
Quarter: 2023Q4

REPORT INFORMATION
  Report Type: Report from Study
  Country: US (occurrence: US)
  Receive Date: 20231120
  Receipt Date: 20231222
  Transmission Date: 20240109
  Serious: Yes (Other)
  Sender: FDA-Public Use
  Company Number: US-TAKEDA-2023TUS111100

PATIENT
  Sex: Male

DRUGS (1)
  1. MARIBAVIR [Suspect]
     Active Substance: MARIBAVIR
     Indication: Cytomegalovirus infection
     Dosage: 400 MILLIGRAM, BID
     Route: 048
     Dates: start: 20231022

REACTIONS (6)
  - Cytomegalovirus infection reactivation [Unknown]
  - Muscular weakness [Unknown]
  - Stress [Unknown]
  - Liver disorder [Unknown]
  - Fluid retention [Unknown]
  - Ageusia [Unknown]
